FAERS Safety Report 25909633 (Version 2)
Quarter: 2025Q4

REPORT INFORMATION
  Report Type: Spontaneous
  Country: US (occurrence: US)
  Receive Date: 20251011
  Receipt Date: 20251201
  Transmission Date: 20260117
  Serious: No
  Sender: SANOFI AVENTIS
  Company Number: US-SA-2025SA301684

PATIENT
  Age: 59 Year
  Sex: Female
  Weight: 80.91 kg

DRUGS (9)
  1. DUPIXENT [Suspect]
     Active Substance: DUPILUMAB
     Indication: Dermatitis atopic
     Dosage: 300 MG, QOW
     Route: 058
     Dates: start: 202507, end: 20251114
  2. RECLAST [Concomitant]
     Active Substance: ZOLEDRONIC ACID
  3. PREMARIN [Concomitant]
     Active Substance: ESTROGENS, CONJUGATED
  4. XYZAL [Concomitant]
     Active Substance: LEVOCETIRIZINE DIHYDROCHLORIDE
  5. ZOLOFT [Concomitant]
     Active Substance: SERTRALINE HYDROCHLORIDE
  6. MIRABEGRON [Concomitant]
     Active Substance: MIRABEGRON
     Dosage: UNK QD
  7. CRESTOR [Concomitant]
     Active Substance: ROSUVASTATIN CALCIUM
  8. LEVOTHYROXINE SODIUM [Concomitant]
     Active Substance: LEVOTHYROXINE SODIUM
  9. FLONASE ALLERGY RELIEF [Concomitant]
     Active Substance: FLUTICASONE PROPIONATE

REACTIONS (12)
  - Flushing [Recovering/Resolving]
  - Skin irritation [Recovering/Resolving]
  - Dermatitis [Recovering/Resolving]
  - Paraesthesia [Recovering/Resolving]
  - Dry skin [Recovering/Resolving]
  - Eye pain [Unknown]
  - Sunburn [Unknown]
  - Pain of skin [Recovering/Resolving]
  - Erythema [Unknown]
  - Periorbital swelling [Recovered/Resolved]
  - Ocular hyperaemia [Recovered/Resolved]
  - Rash [Recovered/Resolved]

NARRATIVE: CASE EVENT DATE: 20250101
